FAERS Safety Report 8083937-4 (Version None)
Quarter: 2012Q1

REPORT INFORMATION
  Report Type: 
  Country: None (occurrence: None)
  Receive Date: 20120128
  Receipt Date: 20110113
  Transmission Date: 20120608
  Serious: No
  Sender: FDA-Public Use
  Company Number: US-ABBOTT-11P-163-0697318-00

PATIENT
  Age: 66 Year
  Sex: Female

DRUGS (8)
  1. SIMVASTATIN [Concomitant]
     Indication: BLOOD CHOLESTEROL INCREASED
  2. CLONAZEPAM [Concomitant]
     Indication: CONVULSION
  3. ASACOL [Concomitant]
     Indication: PRODUCT USED FOR UNKNOWN INDICATION
  4. BICIPROLOL/HCTZ [Concomitant]
     Indication: PRODUCT USED FOR UNKNOWN INDICATION
     Dosage: 6.5/2.5 MG 1/2 TAB DAILY
  5. LEXAPRO [Concomitant]
     Indication: DEPRESSION
  6. NORCO [Concomitant]
     Indication: TENDONITIS
  7. HUMIRA [Suspect]
     Indication: CROHN'S DISEASE
  8. NORCO [Concomitant]
     Indication: ARTHRALGIA

REACTIONS (2)
  - HEADACHE [None]
  - INAPPROPRIATE SCHEDULE OF DRUG ADMINISTRATION [None]
